FAERS Safety Report 23930841 (Version 7)
Quarter: 2024Q3

REPORT INFORMATION
  Report Type: Spontaneous
  Country: CA (occurrence: CA)
  Receive Date: 20240603
  Receipt Date: 20240928
  Transmission Date: 20241016
  Serious: Yes (Hospitalization, Other)
  Sender: CELLTRION
  Company Number: CA-PFIZER INC-202400179712

PATIENT

DRUGS (6)
  1. INFLECTRA [Suspect]
     Active Substance: INFLIXIMAB-DYYB
     Indication: Colitis ulcerative
     Dosage: 10 MG/KG, EVERY 7 WEEKS
     Route: 042
     Dates: start: 20240416, end: 20240416
  2. INFLECTRA [Suspect]
     Active Substance: INFLIXIMAB-DYYB
     Dosage: 920 MG (10 MG/KG), REINDUCTION WEEK 0, 2, 6 THEN MAINTENANCE EVERY 7 WEEKS)
     Route: 042
     Dates: start: 20240808
  3. INFLECTRA [Suspect]
     Active Substance: INFLIXIMAB-DYYB
     Dosage: 920 MG (10 MG/KG), WEEK 2 RE-INDUCTION
     Route: 042
     Dates: start: 20240822
  4. INFLECTRA [Suspect]
     Active Substance: INFLIXIMAB-DYYB
     Dosage: 930 MG, WEEK 6 REINDUCTION (REINDUCTION WEEK 0, 2, 6 THEN MAINTENANCE EVERY 7 WEEKS)
     Route: 042
     Dates: start: 20240918
  5. MESALAMINE [Concomitant]
     Active Substance: MESALAMINE
     Dosage: 1 DF
     Dates: start: 20221201
  6. PREDNISONE [Concomitant]
     Active Substance: PREDNISONE
     Dosage: 1 DF
     Dates: start: 20221201

REACTIONS (4)
  - Arterial occlusive disease [Recovered/Resolved]
  - Drug ineffective [Unknown]
  - Condition aggravated [Not Recovered/Not Resolved]
  - Off label use [Unknown]

NARRATIVE: CASE EVENT DATE: 20240416
